FAERS Safety Report 12304238 (Version 5)
Quarter: 2023Q2

REPORT INFORMATION
  Report Type: Spontaneous
  Country: US (occurrence: US)
  Receive Date: 20160426
  Receipt Date: 20230628
  Transmission Date: 20230722
  Serious: No
  Sender: FDA-Public Use
  Company Number: US-JNJFOC-20160411076

PATIENT
  Sex: Male

DRUGS (7)
  1. RISPERDAL [Suspect]
     Active Substance: RISPERIDONE
     Indication: Attention deficit hyperactivity disorder
     Route: 048
     Dates: start: 20061008
  2. RISPERDAL [Suspect]
     Active Substance: RISPERIDONE
     Indication: Behaviour disorder
     Dosage: 1 TWICE A DAY AND 2 AT BEDTIME.
     Route: 048
     Dates: start: 20061018
  3. RISPERDAL [Suspect]
     Active Substance: RISPERIDONE
     Indication: Bipolar disorder
     Dosage: VARYING DOSES OF 0.5 MG AND 1 MG
     Route: 048
     Dates: start: 20061121, end: 20070312
  4. RISPERDAL [Suspect]
     Active Substance: RISPERIDONE
     Dosage: 1 TWICE A DAY AND AT BEDTIME
     Route: 048
     Dates: end: 20070412
  5. RISPERDAL [Suspect]
     Active Substance: RISPERIDONE
     Dosage: 1 TWICE A DAY AND AT BEDTIME
     Route: 048
     Dates: start: 20070612
  6. RISPERDAL [Suspect]
     Active Substance: RISPERIDONE
     Route: 048
     Dates: end: 20071003
  7. RISPERDAL [Suspect]
     Active Substance: RISPERIDONE
     Dosage: 2 MG EACH AFTERNOON AND 4 MG AT BEDTIME
     Route: 048
     Dates: start: 20130806

REACTIONS (3)
  - Gynaecomastia [Not Recovered/Not Resolved]
  - Weight increased [Recovered/Resolved]
  - Emotional distress [Unknown]
